FAERS Safety Report 20771706 (Version 2)
Quarter: 2022Q2

REPORT INFORMATION
  Report Type: Report from Study
  Country: CA (occurrence: CA)
  Receive Date: 20220430
  Receipt Date: 20220526
  Transmission Date: 20220721
  Serious: Yes (Other)
  Sender: FDA-Public Use
  Company Number: CA-NOVARTISPH-NVSC2022CA096832

PATIENT
  Sex: Female

DRUGS (7)
  1. METHOTREXATE [Suspect]
     Active Substance: METHOTREXATE
     Indication: Product used for unknown indication
     Dosage: 25 MG
     Route: 058
     Dates: start: 2014, end: 2018
  2. METHOTREXATE [Suspect]
     Active Substance: METHOTREXATE
     Indication: Product used for unknown indication
     Dosage: 10 (DOSE AND FREQUENCY UNKNOWN)
     Route: 048
     Dates: start: 2018
  3. IBUPROFEN [Concomitant]
     Active Substance: IBUPROFEN
     Indication: Product used for unknown indication
     Dosage: UNK
     Route: 048
     Dates: start: 2014, end: 2017
  4. NAPROXEN [Concomitant]
     Active Substance: NAPROXEN
     Indication: Product used for unknown indication
     Dosage: UNK
     Route: 048
     Dates: start: 2014, end: 2019
  5. PLAQUENIL [Concomitant]
     Active Substance: HYDROXYCHLOROQUINE SULFATE
     Indication: Product used for unknown indication
     Dosage: UNK
     Route: 048
     Dates: start: 201908, end: 201912
  6. SULFASALAZINE [Concomitant]
     Active Substance: SULFASALAZINE
     Indication: Product used for unknown indication
     Dosage: UNK
     Route: 048
     Dates: start: 201909, end: 201912
  7. XELJANZ [Concomitant]
     Active Substance: TOFACITINIB CITRATE
     Indication: Product used for unknown indication
     Dosage: 10 (DOSE AND FREQUENCY UNKNOWN)
     Route: 048
     Dates: start: 20200205

REACTIONS (15)
  - Atrial fibrillation [Unknown]
  - Carpal tunnel syndrome [Recovered/Resolved]
  - Carpal tunnel syndrome [Recovered/Resolved]
  - Trigger finger [Recovered/Resolved]
  - Aortic aneurysm [Unknown]
  - Cardiomegaly [Unknown]
  - Pulmonary mass [Unknown]
  - Pain in extremity [Unknown]
  - Back pain [Unknown]
  - Movement disorder [Unknown]
  - Swelling [Unknown]
  - Fatigue [Unknown]
  - Sleep deficit [Unknown]
  - Arthritis [Unknown]
  - Trigger finger [Unknown]

NARRATIVE: CASE EVENT DATE: 20170101
